FAERS Safety Report 4651722-9 (Version None)
Quarter: 2005Q2

REPORT INFORMATION
  Report Type: 
  Country: None (occurrence: None)
  Receive Date: 20050404
  Receipt Date: 20041123
  Transmission Date: 20051028
  Serious: No
  Sender: FDA-Public Use
  Company Number: USA041184335

PATIENT
  Age: 62 Year
  Sex: Female
  Weight: 71 kg

DRUGS (1)
  1. CYMBALTA [Suspect]
     Indication: TENDON DISORDER
     Dosage: 30 MG IN THE MORNING
     Dates: start: 20041118

REACTIONS (5)
  - ANOREXIA [None]
  - ARTHRALGIA [None]
  - ASTHENIA [None]
  - HYPERSOMNIA [None]
  - SOMNOLENCE [None]
